FAERS Safety Report 6316734-8 (Version None)
Quarter: 2009Q3

REPORT INFORMATION
  Report Type: 
  Country: None (occurrence: None)
  Receive Date: 20090820
  Receipt Date: 20090810
  Transmission Date: 20100115
  Serious: Yes (Other)
  Sender: FDA-Public Use
  Company Number: US-ELI_LILLY_AND_COMPANY-US_991233166

PATIENT
  Age: 84 Year
  Sex: Female
  Weight: 58.182 kg

DRUGS (9)
  1. EVISTA [Suspect]
     Indication: OSTEOPOROSIS
     Dosage: 60 MG, DAILY (1/D)
     Route: 048
     Dates: start: 19980101
  2. BETAGAN [Concomitant]
     Indication: GLAUCOMA
     Dosage: UNK, UNKNOWN
     Route: 047
  3. TRUSOPT [Concomitant]
     Indication: GLAUCOMA
     Dosage: UNK, UNKNOWN
     Route: 047
  4. PILOCARPINE HYDROCHLORIDE [Concomitant]
     Indication: GLAUCOMA
     Dosage: UNK, UNKNOWN
     Route: 047
  5. ACULAR [Concomitant]
     Indication: GLAUCOMA
     Dosage: UNK, UNKNOWN
  6. AVALIDE [Concomitant]
     Dosage: UNK, UNKNOWN
  7. SYNTHROID [Concomitant]
     Dosage: UNK, UNKNOWN
  8. TOPROL-XL [Concomitant]
     Dosage: UNK, UNKNOWN
  9. VITAMINS [Concomitant]
     Dosage: UNK, UNKNOWN

REACTIONS (5)
  - AORTIC STENOSIS [None]
  - INTRAOCULAR PRESSURE INCREASED [None]
  - OEDEMA PERIPHERAL [None]
  - RETINAL HAEMORRHAGE [None]
  - VISUAL ACUITY REDUCED [None]
